FAERS Safety Report 4664788-7 (Version None)
Quarter: 2005Q2

REPORT INFORMATION
  Report Type: 
  Country: None (occurrence: None)
  Receive Date: 20050516
  Receipt Date: 20050428
  Transmission Date: 20051028
  Serious: Yes (Hospitalization, Other)
  Sender: FDA-Public Use
  Company Number: 2005US000554

PATIENT
  Age: 53 Year
  Sex: Female

DRUGS (12)
  1. AMBISOME [Suspect]
     Indication: ANTIFUNGAL PROPHYLAXIS
     Dosage: RESPIRATORY
     Route: 055
  2. AMPHOTERICIN B [Concomitant]
  3. PROGRAF [Concomitant]
  4. MYCOPHENOLATE MOFETIL (MYCOPHENOLATE MOFETIL) [Concomitant]
  5. PREDNISOLONE [Concomitant]
  6. OMEPRAZOLE [Concomitant]
  7. SEPTRA [Concomitant]
  8. ACYCLOVIR [Concomitant]
  9. DIDRONEL [Concomitant]
  10. VORICONAZOLE (VORICONAZOLE) [Concomitant]
  11. FERROUS SULFATE TAB [Concomitant]
  12. PRAVASTATIN [Concomitant]

REACTIONS (2)
  - DYSPNOEA [None]
  - PULMONARY GRANULOMA [None]
